FAERS Safety Report 8839318 (Version 1)
Quarter: 2012Q4

REPORT INFORMATION
  Report Type: Spontaneous
  Country: US (occurrence: None)
  Receive Date: 20121011
  Receipt Date: 20121011
  Transmission Date: 20130627
  Serious: No
  Sender: FDA-Public Use
  Company Number: None

PATIENT
  Sex: Male

DRUGS (2)
  1. RITALIN [Suspect]
     Indication: ANGER
     Dosage: RITALIN 5MG 1^/2GRAM #45
  2. RITALIN [Suspect]
     Indication: ASPERGER^S SYNDROME
     Dosage: RITALIN 5MG 1^/2GRAM #45

REACTIONS (1)
  - Drug ineffective [None]
